FAERS Safety Report 21938403 (Version 2)
Quarter: 2024Q4

REPORT INFORMATION
  Report Type: Spontaneous
  Country: US (occurrence: US)
  Receive Date: 20230201
  Receipt Date: 20241108
  Transmission Date: 20250115
  Serious: Yes (Hospitalization, Other)
  Sender: PFIZER
  Company Number: US-PFIZER INC-PV202300019365

PATIENT
  Age: 75 Year
  Sex: Female

DRUGS (1)
  1. VYNDAMAX [Suspect]
     Active Substance: TAFAMIDIS
     Indication: Amyloidosis
     Dosage: 61MG CAPSULES ONCE A DAY
     Dates: start: 202110, end: 202410

REACTIONS (9)
  - Fall [Unknown]
  - Fall [Unknown]
  - Hip fracture [Unknown]
  - Contusion [Unknown]
  - Blood pressure decreased [Unknown]
  - Weight decreased [Unknown]
  - Blood creatine abnormal [Unknown]
  - Wrong technique in product usage process [Unknown]
  - Tooth discolouration [Unknown]

NARRATIVE: CASE EVENT DATE: 20240930
